FAERS Safety Report 18763857 (Version 2)
Quarter: 2021Q1

REPORT INFORMATION
  Report Type: Spontaneous
  Country: JP (occurrence: JP)
  Receive Date: 20210120
  Receipt Date: 20210127
  Transmission Date: 20210419
  Serious: Yes (Hospitalization, Other)
  Sender: FDA-Public Use
  Company Number: JP-DSJP-DSJ-2021-101163

PATIENT
  Age: 8 Decade
  Sex: Male

DRUGS (3)
  1. EPLERENONE. [Concomitant]
     Active Substance: EPLERENONE
     Dosage: 50MG/DAY
     Route: 065
  2. NIFEDIPINE. [Concomitant]
     Active Substance: NIFEDIPINE
     Dosage: 40MG/DAY
     Route: 065
  3. OLMETEC OD TABLETS 40MG [Suspect]
     Active Substance: OLMESARTAN MEDOXOMIL
     Indication: HYPERTENSION
     Dosage: 40MG/DAY
     Route: 065

REACTIONS (1)
  - Putamen haemorrhage [Unknown]
